FAERS Safety Report 7086031-4 (Version None)
Quarter: 2010Q4

REPORT INFORMATION
  Report Type: 
  Country: None (occurrence: None)
  Receive Date: 20101105
  Receipt Date: 20101103
  Transmission Date: 20110411
  Serious: Yes (Life-Threatening, Hospitalization, Other)
  Sender: FDA-Public Use
  Company Number: A0857297A

PATIENT
  Age: 63 Year
  Sex: Male
  Weight: 109.1 kg

DRUGS (11)
  1. PROMACTA [Suspect]
     Indication: IDIOPATHIC THROMBOCYTOPENIC PURPURA
     Route: 048
     Dates: start: 20100324
  2. COUMADIN [Concomitant]
     Route: 048
  3. FOLIC ACID [Concomitant]
     Dosage: 10MG PER DAY
     Route: 048
  4. LASIX [Concomitant]
     Dosage: 20MG PER DAY
     Route: 048
  5. PREDNISONE [Concomitant]
     Indication: IDIOPATHIC THROMBOCYTOPENIC PURPURA
     Dosage: 10MG PER DAY
     Route: 048
  6. VICODIN [Concomitant]
     Indication: PAIN
  7. POTASSIUM GLUCONATE TAB [Concomitant]
     Route: 048
  8. PEPCID [Concomitant]
     Route: 048
  9. ASPIRIN [Concomitant]
     Route: 048
  10. FUROSEMIDE [Concomitant]
  11. UNKNOWN [Concomitant]

REACTIONS (20)
  - ANGINA UNSTABLE [None]
  - ANGIOPLASTY [None]
  - ATRIOVENTRICULAR BLOCK [None]
  - CARDIAC DISORDER [None]
  - CATARACT [None]
  - CATHETERISATION CARDIAC [None]
  - CEREBRAL HAEMORRHAGE [None]
  - CHEST DISCOMFORT [None]
  - DYSPNOEA [None]
  - ELECTROCARDIOGRAM ST SEGMENT ELEVATION [None]
  - EMBOLISM ARTERIAL [None]
  - GASTROINTESTINAL SOUNDS ABNORMAL [None]
  - HYPERHIDROSIS [None]
  - MYOCARDIAL INFARCTION [None]
  - PLATELET COUNT DECREASED [None]
  - PLATELET COUNT INCREASED [None]
  - PULMONARY THROMBOSIS [None]
  - STENT PLACEMENT [None]
  - THROMBOSIS [None]
  - VISUAL ACUITY REDUCED [None]
